FAERS Safety Report 20022308 (Version 21)
Quarter: 2023Q4

REPORT INFORMATION
  Report Type: Spontaneous
  Country: CA (occurrence: CA)
  Receive Date: 20211102
  Receipt Date: 20231023
  Transmission Date: 20240110
  Serious: Yes (Other)
  Sender: FDA-Public Use
  Company Number: CA-CELLTRION INC.-2021CA013465

PATIENT

DRUGS (33)
  1. INFLECTRA [Suspect]
     Active Substance: INFLIXIMAB-DYYB
     Indication: Crohn^s disease
     Dosage: UNK
     Route: 042
  2. INFLECTRA [Suspect]
     Active Substance: INFLIXIMAB-DYYB
     Dosage: 500 MG EVERY 8 WEEKS
     Route: 042
     Dates: start: 20210909
  3. INFLECTRA [Suspect]
     Active Substance: INFLIXIMAB-DYYB
     Dosage: 400 MG EVERY 8 WEEKS
     Route: 042
     Dates: start: 20210909
  4. INFLECTRA [Suspect]
     Active Substance: INFLIXIMAB-DYYB
     Dosage: 500 MG EVERY 8 WEEKS
     Route: 042
     Dates: start: 20210923
  5. INFLECTRA [Suspect]
     Active Substance: INFLIXIMAB-DYYB
     Dosage: 500 MG EVERY 8 WEEKS
     Route: 042
     Dates: start: 20211021
  6. INFLECTRA [Suspect]
     Active Substance: INFLIXIMAB-DYYB
     Dosage: 500 MG EVERY 8 WEEKS
     Route: 042
     Dates: start: 20211216
  7. INFLECTRA [Suspect]
     Active Substance: INFLIXIMAB-DYYB
     Dosage: 500 MG EVERY 8 WEEKS
     Route: 042
     Dates: start: 20220210
  8. INFLECTRA [Suspect]
     Active Substance: INFLIXIMAB-DYYB
     Dosage: 500 MG EVERY 8 WEEKS
     Route: 042
     Dates: start: 20220408
  9. INFLECTRA [Suspect]
     Active Substance: INFLIXIMAB-DYYB
     Dosage: 500 MG EVERY 8 WEEKS
     Route: 042
     Dates: start: 20220408
  10. INFLECTRA [Suspect]
     Active Substance: INFLIXIMAB-DYYB
     Dosage: 500 MG EVERY 8 WEEKS
     Route: 042
     Dates: start: 20220615
  11. INFLECTRA [Suspect]
     Active Substance: INFLIXIMAB-DYYB
     Dosage: 500 MG EVERY 8 WEEKS
     Route: 042
     Dates: start: 20220628
  12. INFLECTRA [Suspect]
     Active Substance: INFLIXIMAB-DYYB
     Dosage: 500 MG EVERY 8 WEEKS
     Route: 042
     Dates: start: 20220628
  13. INFLECTRA [Suspect]
     Active Substance: INFLIXIMAB-DYYB
     Dosage: 500 MG EVERY 8 WEEKS
     Route: 042
     Dates: start: 20220831
  14. INFLECTRA [Suspect]
     Active Substance: INFLIXIMAB-DYYB
     Dosage: 500 MG EVERY 8 WEEKS
     Route: 042
     Dates: start: 20220831
  15. INFLECTRA [Suspect]
     Active Substance: INFLIXIMAB-DYYB
     Dosage: 500 MG EVERY 8 WEEKS
     Route: 042
     Dates: start: 20221104
  16. INFLECTRA [Suspect]
     Active Substance: INFLIXIMAB-DYYB
     Dosage: 500 MG EVERY 8 WEEKS
     Route: 042
     Dates: start: 20221104
  17. INFLECTRA [Suspect]
     Active Substance: INFLIXIMAB-DYYB
     Dosage: 500 MG EVERY 8 WEEKS
     Route: 042
     Dates: start: 20221229
  18. INFLECTRA [Suspect]
     Active Substance: INFLIXIMAB-DYYB
     Dosage: 500 MG EVERY 8 WEEKS
     Route: 042
     Dates: start: 20230224
  19. INFLECTRA [Suspect]
     Active Substance: INFLIXIMAB-DYYB
     Dosage: 500 MG EVERY 8 WEEKS
     Route: 042
     Dates: start: 20230421
  20. INFLECTRA [Suspect]
     Active Substance: INFLIXIMAB-DYYB
     Dosage: 400 MG EVERY 8 WEEKS
     Route: 042
     Dates: start: 20230421
  21. INFLECTRA [Suspect]
     Active Substance: INFLIXIMAB-DYYB
     Dosage: 500 MG EVERY 8 WEEKS
     Route: 042
     Dates: start: 20230623
  22. INFLECTRA [Suspect]
     Active Substance: INFLIXIMAB-DYYB
     Dosage: 500 MG EVERY 8 WEEKS
     Route: 042
     Dates: start: 20230623
  23. INFLECTRA [Suspect]
     Active Substance: INFLIXIMAB-DYYB
     Dosage: 400 MG EVERY 8 WEEKS
     Route: 042
     Dates: start: 20231013
  24. MEDROXYPROGESTERONE ACETATE [Concomitant]
     Active Substance: MEDROXYPROGESTERONE ACETATE
     Indication: Endometriosis
     Dosage: UNK, DAILY
     Route: 048
  25. BENADRYL [Concomitant]
     Active Substance: DIPHENHYDRAMINE HYDROCHLORIDE
     Indication: Premedication
     Dosage: UNK
     Route: 042
  26. BILASTINE [Concomitant]
     Active Substance: BILASTINE
     Indication: Hypersensitivity
     Dosage: 1X/DAY, PO
     Route: 048
     Dates: start: 202206
  27. DEPO-PROVERA [Concomitant]
     Active Substance: MEDROXYPROGESTERONE ACETATE
     Indication: Endometriosis
     Dosage: EVERY 3 MONTHS (1INJ Q 3 MONTHS)
     Route: 030
  28. IPRATROPIUM [Concomitant]
     Active Substance: IPRATROPIUM
     Indication: Pneumonitis
     Dosage: 20 UG, 4X/DAY (QID), PRN, PO
     Route: 048
  29. IPRATROPIUM [Concomitant]
     Active Substance: IPRATROPIUM
     Dosage: 20 UG, AS NEEDED
     Route: 048
  30. NORLUTATE [Concomitant]
     Active Substance: NORETHINDRONE ACETATE
     Indication: Endometriosis
     Dosage: 1X/DAY
     Route: 048
     Dates: start: 202206
  31. CETIRIZINE HYDROCHLORIDE [Concomitant]
     Active Substance: CETIRIZINE HYDROCHLORIDE
     Indication: Hypersensitivity
     Dosage: AS NEEDED
     Route: 048
  32. ALBUTEROL SULFATE [Concomitant]
     Active Substance: ALBUTEROL SULFATE
     Indication: Pneumonitis
     Dosage: 4X/DAY (2 PUFFS), PRN (IF NEEDED) PO
     Route: 048
  33. ALBUTEROL SULFATE [Concomitant]
     Active Substance: ALBUTEROL SULFATE
     Dosage: AS NEEDED, 2 PUFFS POST COVID VACCINE ONGOING
     Route: 048

REACTIONS (48)
  - Ear infection bacterial [Recovered/Resolved]
  - Pharyngitis bacterial [Recovered/Resolved]
  - Sinusitis [Recovered/Resolved]
  - Skin disorder [Unknown]
  - Choking [Recovering/Resolving]
  - Therapeutic product effect variable [Unknown]
  - Condition aggravated [Not Recovered/Not Resolved]
  - Acne cystic [Unknown]
  - Condition aggravated [Unknown]
  - Fall [Unknown]
  - Limb injury [Unknown]
  - Peripheral swelling [Unknown]
  - Pain in extremity [Unknown]
  - Mouth swelling [Recovered/Resolved]
  - Swollen tongue [Recovered/Resolved]
  - Dyspnoea [Recovered/Resolved]
  - Endometriosis [Recovered/Resolved]
  - Condition aggravated [Recovered/Resolved]
  - Headache [Unknown]
  - Diplopia [Recovered/Resolved]
  - Visual impairment [Not Recovered/Not Resolved]
  - Migraine [Not Recovered/Not Resolved]
  - Gastrooesophageal reflux disease [Unknown]
  - Oral mucosal erythema [Recovered/Resolved]
  - Tongue erythema [Recovered/Resolved]
  - Pharyngeal erythema [Recovered/Resolved]
  - Pharyngeal swelling [Recovered/Resolved]
  - Generalised oedema [Recovered/Resolved]
  - Influenza [Unknown]
  - Pyrexia [Not Recovered/Not Resolved]
  - Cough [Not Recovered/Not Resolved]
  - Middle ear effusion [Not Recovered/Not Resolved]
  - Concussion [Unknown]
  - Photophobia [Not Recovered/Not Resolved]
  - Upper-airway cough syndrome [Unknown]
  - Ear pain [Recovered/Resolved]
  - Ear inflammation [Not Recovered/Not Resolved]
  - COVID-19 [Unknown]
  - Defaecation urgency [Not Recovered/Not Resolved]
  - Mucous stools [Not Recovered/Not Resolved]
  - Skin lesion [Unknown]
  - Throat tightness [Recovering/Resolving]
  - Dysphagia [Recovering/Resolving]
  - Oropharyngeal pain [Unknown]
  - Sneezing [Unknown]
  - Off label use [Unknown]
  - Inappropriate schedule of product administration [Unknown]
  - Incorrect dose administered [Unknown]

NARRATIVE: CASE EVENT DATE: 20210101
